FAERS Safety Report 16480052 (Version 1)
Quarter: 2019Q2

REPORT INFORMATION
  Report Type: Spontaneous
  Country: US (occurrence: US)
  Receive Date: 20190626
  Receipt Date: 20190626
  Transmission Date: 20190711
  Serious: Yes (Other)
  Sender: FDA-Public Use
  Company Number: US-MALLINCKRODT-T201904495

PATIENT
  Sex: Female

DRUGS (1)
  1. H.P. ACTHAR [Suspect]
     Active Substance: CORTICOTROPIN
     Indication: PRODUCT USED FOR UNKNOWN INDICATION
     Dosage: 1ML (80UNITS) DAILY FOR 5 DAYS
     Route: 065
     Dates: start: 201406

REACTIONS (2)
  - Angiopathy [Unknown]
  - Stent placement [Unknown]
